FAERS Safety Report 5625268-5 (Version None)
Quarter: 2008Q1

REPORT INFORMATION
  Report Type: 
  Country: None (occurrence: None)
  Receive Date: 20080208
  Receipt Date: 20080128
  Transmission Date: 20080703
  Serious: Yes (Other)
  Sender: FDA-Public Use
  Company Number: 100#03#2008-00490

PATIENT
  Age: 53 Year
  Sex: Female

DRUGS (2)
  1. CITALOPRAM HYDROBROMIDE [Suspect]
     Indication: DEPRESSION
     Dosage: 10 MG ONCE DAILY ORAL
     Route: 048
  2. HYOSCINE HBR HYT [Concomitant]

REACTIONS (4)
  - AGITATION [None]
  - HYPERTHYROIDISM [None]
  - MYALGIA [None]
  - OEDEMA PERIPHERAL [None]
